FAERS Safety Report 9955778 (Version 1)
Quarter: 2014Q1

REPORT INFORMATION
  Report Type: Spontaneous
  Country: GB (occurrence: GB)
  Receive Date: 20140304
  Receipt Date: 20140304
  Transmission Date: 20141002
  Serious: Yes (Other)
  Sender: FDA-Public Use
  Company Number: GB-ASTRAZENECA-2014SE13230

PATIENT
  Age: 59 Year
  Sex: Male
  Weight: 101.6 kg

DRUGS (1)
  1. CRESTOR [Suspect]
     Indication: HYPERCHOLESTEROLAEMIA
     Route: 048
     Dates: start: 20140201, end: 20140201

REACTIONS (2)
  - Confusional state [Recovered/Resolved with Sequelae]
  - Transient global amnesia [Recovered/Resolved with Sequelae]
